FAERS Safety Report 4741747-7 (Version None)
Quarter: 2005Q3

REPORT INFORMATION
  Report Type: 
  Country: None (occurrence: None)
  Receive Date: 20050808
  Receipt Date: 20050728
  Transmission Date: 20060218
  Serious: Yes (Hospitalization)
  Sender: FDA-Public Use
  Company Number: CERZ-10883

PATIENT
  Age: 6 Year
  Sex: Female
  Weight: 6 kg

DRUGS (11)
  1. CEREZYME [Suspect]
     Indication: GAUCHER'S DISEASE
     Dosage: 600 UNITS Q2WKS IV
     Route: 042
     Dates: start: 20010406
  2. CEREZYME [Suspect]
     Indication: GAUCHER'S DISEASE
     Dosage: 66.7 U/KG Q2WKS IV
     Route: 042
     Dates: start: 19990118
  3. VALPROATE SODIUM [Concomitant]
  4. CLONAZEPAM [Concomitant]
  5. FAMOTIDINE [Concomitant]
  6. DOMPERIDONE` [Concomitant]
  7. DIAZEPAM [Concomitant]
  8. DANTROLENE SODIUM [Concomitant]
  9. ZONISAMIDE [Concomitant]
  10. FUROSEMIDE [Concomitant]
  11. SPIRONOLACTONE [Concomitant]

REACTIONS (3)
  - BLOOD CREATININE DECREASED [None]
  - BLOOD UREA INCREASED [None]
  - URINARY TRACT INFECTION [None]
